FAERS Safety Report 9347079 (Version 1)
Quarter: 2013Q2

REPORT INFORMATION
  Report Type: Spontaneous
  Country: GB (occurrence: GB)
  Receive Date: 20130613
  Receipt Date: 20130613
  Transmission Date: 20140414
  Serious: Yes (Other)
  Sender: FDA-Public Use
  Company Number: GB-GLAXOSMITHKLINE-B0897187A

PATIENT
  Age: 62 Year
  Sex: Male

DRUGS (7)
  1. RETIGABINE [Suspect]
     Indication: EPILEPSY
     Dosage: 300MG PER DAY
     Route: 048
     Dates: start: 20130429
  2. AMOXICILLIN [Concomitant]
     Route: 048
  3. EPILIM CHRONO [Concomitant]
     Dosage: 400MG PER DAY
  4. EPILIM CHRONO [Concomitant]
     Dosage: 2000MG PER DAY
  5. LEVOTHYROXINE SODIUM [Concomitant]
     Dosage: 100MCG PER DAY
  6. PROPRANOLOL [Concomitant]
  7. TIAGABINE [Concomitant]
     Dosage: 20MG PER DAY

REACTIONS (2)
  - Hallucination, auditory [Not Recovered/Not Resolved]
  - Diarrhoea [Not Recovered/Not Resolved]
